FAERS Safety Report 7672282-4 (Version None)
Quarter: 2011Q3

REPORT INFORMATION
  Report Type: 
  Country: None (occurrence: None)
  Receive Date: 20110809
  Receipt Date: 20110802
  Transmission Date: 20111222
  Serious: Yes (Other)
  Sender: FDA-Public Use
  Company Number: GB-PFIZER INC-2011148830

PATIENT
  Age: 3 Year
  Sex: Male
  Weight: 23 kg

DRUGS (1)
  1. BENEFIX [Suspect]
     Indication: FACTOR IX DEFICIENCY
     Dosage: 90IU/KG (2000IU VIAL) DAILY
     Dates: end: 20110518

REACTIONS (1)
  - FACTOR IX INHIBITION [None]
